FAERS Safety Report 18574216 (Version 1)
Quarter: 2020Q4

REPORT INFORMATION
  Report Type: Spontaneous
  Country: US (occurrence: US)
  Receive Date: 20201203
  Receipt Date: 20201203
  Transmission Date: 20210114
  Serious: No
  Sender: FDA-Public Use
  Company Number: US-AMNEAL PHARMACEUTICALS-2019-AMRX-03008

PATIENT
  Sex: Female
  Weight: 81.63 kg

DRUGS (2)
  1. RANITIDINE. [Suspect]
     Active Substance: RANITIDINE
     Indication: GASTROOESOPHAGEAL REFLUX DISEASE
     Dosage: 1 TABLETS, 2X/DAY
     Route: 048
     Dates: end: 201911
  2. CELEXA [CELECOXIB] [Concomitant]
     Active Substance: CELECOXIB
     Indication: DEPRESSION
     Dosage: 1 TABLETS, DAILY
     Route: 065

REACTIONS (2)
  - Dyspnoea [Unknown]
  - Gastrointestinal disorder [Not Recovered/Not Resolved]
